FAERS Safety Report 9856063 (Version 1)
Quarter: 2014Q1

REPORT INFORMATION
  Report Type: Spontaneous
  Country: IT (occurrence: IT)
  Receive Date: 20140130
  Receipt Date: 20140130
  Transmission Date: 20141002
  Serious: Yes (Hospitalization)
  Sender: FDA-Public Use
  Company Number: IT-MYLANLABS-2014S1001257

PATIENT
  Age: 86 Year
  Sex: Male

DRUGS (6)
  1. PANTOPRAZOLE [Suspect]
     Indication: GASTRITIS PROPHYLAXIS
     Dosage: 40 MG DAILY
     Route: 048
  2. COUMADIN [Interacting]
     Indication: ATRIAL FIBRILLATION
     Dosage: 1.25 MG DAILY
     Route: 048
     Dates: start: 20080101, end: 20131203
  3. COUMADIN [Interacting]
     Indication: ATRIAL FIBRILLATION
     Dates: start: 20131205, end: 20131218
  4. ENALAPRIL [Concomitant]
     Indication: PRODUCT USED FOR UNKNOWN INDICATION
     Dosage: 10 MG
     Route: 048
  5. FUROSEMIDE [Concomitant]
     Indication: PRODUCT USED FOR UNKNOWN INDICATION
     Dosage: 25 MG
     Route: 048
  6. BISOPROLOL HEMIFUMARATE [Concomitant]
     Indication: PRODUCT USED FOR UNKNOWN INDICATION
     Dosage: 1.25 MG
     Route: 048

REACTIONS (2)
  - Drug interaction [Recovered/Resolved]
  - Hypocoagulable state [Recovered/Resolved]
